FAERS Safety Report 18172668 (Version 2)
Quarter: 2020Q3

REPORT INFORMATION
  Report Type: Spontaneous
  Country: US (occurrence: US)
  Receive Date: 20200820
  Receipt Date: 20200917
  Transmission Date: 20201103
  Serious: No
  Sender: FDA-Public Use
  Company Number: US-AMGEN INC.-USASP2020132032

PATIENT
  Age: 41 Year
  Sex: Female

DRUGS (1)
  1. AIMOVIG [Suspect]
     Active Substance: ERENUMAB-AOOE
     Indication: PRODUCT USED FOR UNKNOWN INDICATION
     Dosage: 140 MILLIGRAM, QMO (EVERY 28 DAYS)
     Route: 065
     Dates: start: 2019

REACTIONS (4)
  - Injury associated with device [Unknown]
  - Injection site haemorrhage [Unknown]
  - Accidental exposure to product [Unknown]
  - Injection site pain [Unknown]

NARRATIVE: CASE EVENT DATE: 20200813
